FAERS Safety Report 24143419 (Version 1)
Quarter: 2024Q3

REPORT INFORMATION
  Report Type: Report from Study
  Country: US (occurrence: US)
  Receive Date: 20240726
  Receipt Date: 20240726
  Transmission Date: 20241017
  Serious: Yes (Hospitalization, Other)
  Sender: ABBVIE
  Company Number: US-ABBVIE-5845741

PATIENT
  Age: 59 Year
  Sex: Male

DRUGS (3)
  1. RINVOQ [Suspect]
     Active Substance: UPADACITINIB
     Indication: Colitis ulcerative
     Dosage: LAST ADMIN DATE 2023, ?TITRATION DOSING: 45MG TABLET BY MOUTH DAILY X FIRST 8 WEEKS (10/2023- EXA...
     Route: 048
     Dates: start: 202310
  2. RINVOQ [Suspect]
     Active Substance: UPADACITINIB
     Indication: Colitis ulcerative
     Dosage: STRENGHT 30 MG
     Route: 048
     Dates: start: 20240605
  3. RINVOQ [Suspect]
     Active Substance: UPADACITINIB
     Indication: Colitis ulcerative
     Dosage: STRENGHT 30 MG
     Route: 048
     Dates: end: 20240528

REACTIONS (4)
  - Colonoscopy [Unknown]
  - Abdominal distension [Recovered/Resolved]
  - Abdominal pain [Unknown]
  - Appendicectomy [Recovered/Resolved]

NARRATIVE: CASE EVENT DATE: 20240525
